FAERS Safety Report 12226138 (Version 1)
Quarter: 2016Q1

REPORT INFORMATION
  Report Type: Report from Study
  Country: BR (occurrence: BR)
  Receive Date: 20160331
  Receipt Date: 20160331
  Transmission Date: 20160526
  Serious: Yes (Other)
  Sender: FDA-Public Use
  Company Number: PHHY2016BR027469

PATIENT
  Sex: Female
  Weight: 62 kg

DRUGS (2)
  1. SANDOSTATIN LAR DEPOT [Suspect]
     Active Substance: OCTREOTIDE ACETATE
     Indication: ACROMEGALY
     Dosage: 30 MG, QMO
     Route: 030
     Dates: start: 2009
  2. PREDNISONE. [Concomitant]
     Active Substance: PREDNISONE
     Indication: PRODUCT USED FOR UNKNOWN INDICATION
     Dosage: UNK UNK, QD (EVERY DAY IN THE MORNING)
     Route: 065

REACTIONS (8)
  - Memory impairment [Unknown]
  - Headache [Unknown]
  - Malaise [Unknown]
  - Poor quality sleep [Unknown]
  - Dengue fever [Unknown]
  - Viral infection [Unknown]
  - Syncope [Unknown]
  - Hyperhidrosis [Unknown]
